FAERS Safety Report 24969941 (Version 1)
Quarter: 2025Q1

REPORT INFORMATION
  Report Type: Spontaneous
  Country: US (occurrence: None)
  Receive Date: 20250213
  Receipt Date: 20250213
  Transmission Date: 20250409
  Serious: Yes (Death)
  Sender: FDA-CTU
  Company Number: None

PATIENT
  Age: 94 Year
  Sex: Female

DRUGS (8)
  1. ERIVEDGE [Suspect]
     Active Substance: VISMODEGIB
     Indication: Basal cell carcinoma
     Dosage: FREQUENCY : DAILY;?
     Route: 048
     Dates: start: 20230718, end: 20241231
  2. AMLODIPINE [Concomitant]
     Active Substance: AMLODIPINE BESYLATE
  3. Brimonidine 0.2% opth solution [Concomitant]
  4. DORZOLAMIDE\TIMOLOL [Concomitant]
     Active Substance: DORZOLAMIDE\TIMOLOL
  5. Latanoprost 0.005% opth solution [Concomitant]
  6. OLMESARTAN [Concomitant]
     Active Substance: OLMESARTAN
  7. TAMSULOSIN [Concomitant]
     Active Substance: TAMSULOSIN
  8. QUETIAPINE [Concomitant]
     Active Substance: QUETIAPINE

REACTIONS (1)
  - Senile dementia [None]

NARRATIVE: CASE EVENT DATE: 20250212
